FAERS Safety Report 17273434 (Version 1)
Quarter: 2020Q1

REPORT INFORMATION
  Report Type: Spontaneous
  Country: CH (occurrence: CH)
  Receive Date: 20200115
  Receipt Date: 20200115
  Transmission Date: 20200409
  Serious: Yes (Other)
  Sender: FDA-Public Use
  Company Number: CH-FRESENIUS KABI-FK202000392

PATIENT
  Age: 58 Year
  Sex: Female

DRUGS (1)
  1. ADENOSINE INJECTION (MANUFACTURER UNKNOWN) [Suspect]
     Active Substance: ADENOSINE
     Indication: FRACTIONAL FLOW RESERVE
     Dosage: 240 MCG INJECTION OF 20 ML.VOLUME
     Route: 022

REACTIONS (2)
  - Torsade de pointes [Unknown]
  - Circulatory collapse [Unknown]
